FAERS Safety Report 11317534 (Version 1)
Quarter: 2015Q3

REPORT INFORMATION
  Report Type: Spontaneous
  Country: FR (occurrence: FR)
  Receive Date: 20150728
  Receipt Date: 20150728
  Transmission Date: 20151125
  Serious: Yes (Other)
  Sender: FDA-Public Use
  Company Number: FR-PFIZER INC-2015248120

PATIENT
  Age: 31 Year
  Sex: Female

DRUGS (3)
  1. LYRICA [Suspect]
     Active Substance: PREGABALIN
     Dosage: 1400 MG, 1X/DAY
     Dates: start: 201407, end: 201412
  2. TOPALGIC LP [Suspect]
     Active Substance: TRAMADOL
     Dosage: 200 MG, 1X/DAY
     Dates: start: 201407, end: 201412
  3. ASPEGIC [Suspect]
     Active Substance: ASPIRIN DL-LYSINE
     Dosage: 75 MG, 1X/DAY
     Dates: start: 201407, end: 201412

REACTIONS (2)
  - Intentional overdose [Unknown]
  - Gestational diabetes [Unknown]
